FAERS Safety Report 20907959 (Version 2)
Quarter: 2022Q2

REPORT INFORMATION
  Report Type: Report from Study
  Country: SG (occurrence: SG)
  Receive Date: 20220602
  Receipt Date: 20220615
  Transmission Date: 20220721
  Serious: Yes (Death, Other)
  Sender: FDA-Public Use
  Company Number: SG-TEVA-2022-SG-2041106

PATIENT
  Age: 79 Year
  Sex: Female

DRUGS (3)
  1. PREDNISOLONE [Suspect]
     Active Substance: PREDNISOLONE
     Indication: Cytokine release syndrome
     Dosage: 50 MILLIGRAM DAILY;
     Route: 065
  2. PEMBROLIZUMAB [Suspect]
     Active Substance: PEMBROLIZUMAB
     Indication: Colorectal cancer stage IV
     Route: 050
  3. METHYLPREDNISOLONE [Concomitant]
     Active Substance: METHYLPREDNISOLONE
     Indication: Cytokine release syndrome
     Dosage: 2 MG/KG DAILY;
     Route: 042

REACTIONS (6)
  - Cytokine release syndrome [Fatal]
  - Drug ineffective [Fatal]
  - Encephalopathy [Fatal]
  - Acute respiratory failure [Fatal]
  - Respiratory failure [Fatal]
  - Systemic inflammatory response syndrome [Fatal]
